FAERS Safety Report 8870501 (Version 1)
Quarter: 2012Q4

REPORT INFORMATION
  Report Type: 
  Country: US (occurrence: US)
  Receive Date: 20121026
  Receipt Date: 20121026
  Transmission Date: 20130627
  Serious: No
  Sender: FDA-Public Use
  Company Number: US-AMGEN-USASP2012043445

PATIENT
  Age: 45 Year
  Sex: Female
  Weight: 120 kg

DRUGS (18)
  1. ENBREL [Suspect]
     Indication: PRODUCT USED FOR UNKNOWN INDICATION
     Dosage: 50 mg/ml, qwk
     Route: 058
  2. XANAX [Concomitant]
     Dosage: 0.25 mg, UNK
  3. PAXIL [Concomitant]
     Dosage: 40 mg, UNK
  4. SAPHRIS [Concomitant]
     Dosage: 10 mg, UNK
     Route: 058
  5. METHOTREXATE [Concomitant]
     Dosage: 2.5 mg, UNK
  6. SYNTHROID [Concomitant]
     Dosage: 75 mug, UNK
  7. NEXIUM                             /01479302/ [Concomitant]
     Dosage: 40 mg, UNK
  8. SAVELLA [Concomitant]
     Dosage: 25 mg, UNK
  9. MULTIVITAMIN                       /00097801/ [Concomitant]
     Dosage: UNK
  10. ADVIL                              /00044201/ [Concomitant]
     Dosage: 200 mg, UNK
  11. CALCIUM 500+D [Concomitant]
  12. FISH OIL [Concomitant]
  13. VITAMIN D /00107901/ [Concomitant]
     Dosage: 1000 unit, UNK
  14. KADIAN [Concomitant]
     Dosage: 100 mg CR, UNK
  15. IRON [Concomitant]
     Dosage: 325 mg, UNK
  16. VITAMIN B COMPLEX [Concomitant]
  17. NUCYNTA [Concomitant]
     Dosage: 100 mg, UNK
  18. NUVIGIL [Concomitant]
     Dosage: 150 mg, UNK

REACTIONS (2)
  - Decreased appetite [Unknown]
  - Weight decreased [Unknown]
